FAERS Safety Report 21044976 (Version 1)
Quarter: 2022Q3

REPORT INFORMATION
  Report Type: Spontaneous
  Country: US (occurrence: US)
  Receive Date: 20220705
  Receipt Date: 20220705
  Transmission Date: 20221027
  Serious: Yes (Other)
  Sender: FDA-Public Use
  Company Number: US-BAYER-2022A089761

PATIENT
  Age: 91 Year
  Sex: Male

DRUGS (1)
  1. NUBEQA [Suspect]
     Active Substance: DAROLUTAMIDE
     Dosage: UNK
     Dates: start: 20220622, end: 20220623

REACTIONS (5)
  - Metastasis [None]
  - Asthenia [None]
  - Fatigue [None]
  - Full blood count abnormal [None]
  - Lacrimal disorder [None]
